FAERS Safety Report 24315572 (Version 3)
Quarter: 2025Q1

REPORT INFORMATION
  Report Type: Report from Study
  Country: BR (occurrence: BR)
  Receive Date: 20240913
  Receipt Date: 20250205
  Transmission Date: 20250409
  Serious: Yes (Other)
  Sender: TAKEDA
  Company Number: BR-TAKEDA-2024TUS089899

PATIENT
  Sex: Female

DRUGS (1)
  1. VEDOLIZUMAB [Suspect]
     Active Substance: VEDOLIZUMAB
     Indication: Colitis ulcerative

REACTIONS (14)
  - Thrombosis [Not Recovered/Not Resolved]
  - Gait inability [Unknown]
  - Amenorrhoea [Unknown]
  - Anal incontinence [Unknown]
  - Abdominal pain upper [Unknown]
  - Depressed mood [Unknown]
  - Discouragement [Unknown]
  - Weight abnormal [Unknown]
  - Anger [Unknown]
  - Inappropriate schedule of product administration [Unknown]
  - Rectal tenesmus [Unknown]
  - Dizziness [Unknown]
  - Dyspnoea [Unknown]
  - Flatulence [Unknown]
